FAERS Safety Report 6693585-6 (Version None)
Quarter: 2010Q2

REPORT INFORMATION
  Report Type: 
  Country: None (occurrence: None)
  Receive Date: 20100423
  Receipt Date: 20100310
  Transmission Date: 20101027
  Serious: No
  Sender: FDA-Public Use
  Company Number: 2007BI021080

PATIENT
  Age: 58 Year
  Sex: Female

DRUGS (1)
  1. TYSABRI [Suspect]
     Indication: MULTIPLE SCLEROSIS
     Route: 042
     Dates: start: 20070828

REACTIONS (7)
  - ARTHRALGIA [None]
  - BACK PAIN [None]
  - FATIGUE [None]
  - INTERVERTEBRAL DISC COMPRESSION [None]
  - MEMORY IMPAIRMENT [None]
  - MUSCULAR WEAKNESS [None]
  - SPINAL COMPRESSION FRACTURE [None]
